FAERS Safety Report 26087311 (Version 1)
Quarter: 2025Q4

REPORT INFORMATION
  Report Type: Report from Study
  Country: US (occurrence: US)
  Receive Date: 20251125
  Receipt Date: 20251125
  Transmission Date: 20260118
  Serious: Yes (Hospitalization)
  Sender: ABBVIE
  Company Number: US-ABBVIE-6467315

PATIENT
  Age: 68 Year
  Sex: Female

DRUGS (1)
  1. VYALEV [Suspect]
     Active Substance: FOSCARBIDOPA\FOSLEVODOPA
     Indication: Parkinson^s disease
     Route: 058
     Dates: start: 20250916, end: 20251106

REACTIONS (11)
  - Nodule [Unknown]
  - Vomiting [Recovering/Resolving]
  - Abdominal pain upper [Unknown]
  - Catheter site induration [Recovering/Resolving]
  - Catheter site mass [Recovering/Resolving]
  - Catheter site papule [Recovering/Resolving]
  - Catheter site erythema [Recovering/Resolving]
  - Catheter site pruritus [Recovering/Resolving]
  - Rash erythematous [Unknown]
  - Device dislocation [Unknown]
  - Pain [Unknown]

NARRATIVE: CASE EVENT DATE: 20250101
